FAERS Safety Report 19465401 (Version 1)
Quarter: 2021Q2

REPORT INFORMATION
  Report Type: Spontaneous
  Country: IT (occurrence: IT)
  Receive Date: 20210624
  Receipt Date: 20210624
  Transmission Date: 20210717
  Serious: Yes (Hospitalization, Other)
  Sender: FDA-Public Use
  Company Number: IT-GLAXOSMITHKLINE-ITCH2021GSK040278

PATIENT
  Age: 76 Year
  Sex: Male

DRUGS (4)
  1. AMOXYCILLIN [Suspect]
     Active Substance: AMOXICILLIN
     Indication: GINGIVITIS
  2. IBUPROFEN. [Suspect]
     Active Substance: IBUPROFEN
     Indication: TOOTHACHE
     Dosage: 600 MG, TID
  3. IBUPROFEN. [Suspect]
     Active Substance: IBUPROFEN
     Indication: GINGIVITIS
  4. AMOXYCILLIN [Suspect]
     Active Substance: AMOXICILLIN
     Indication: TOOTHACHE
     Dosage: 500 MG, BID

REACTIONS (13)
  - Confusional state [Recovered/Resolved]
  - Condition aggravated [Recovered/Resolved]
  - Myalgia [Recovered/Resolved]
  - Encephalitis [Recovered/Resolved]
  - Amnesia [Recovered/Resolved]
  - Illusion [Recovered/Resolved]
  - Mental impairment [Recovered/Resolved]
  - Pleocytosis [Recovered/Resolved]
  - Decreased appetite [Recovered/Resolved]
  - Dizziness [Recovered/Resolved]
  - Apraxia [Recovered/Resolved]
  - Somnolence [Recovered/Resolved]
  - Asthenia [Recovered/Resolved]
